FAERS Safety Report 4482600-6 (Version None)
Quarter: 2004Q4

REPORT INFORMATION
  Report Type: 
  Country: None (occurrence: None)
  Receive Date: 20041022
  Receipt Date: 20041019
  Transmission Date: 20050328
  Serious: Yes (Hospitalization)
  Sender: FDA-Public Use
  Company Number: US-JNJFOC-20041005639

PATIENT
  Sex: Male

DRUGS (12)
  1. VIADUR [Suspect]
     Route: 058
  2. NORVASC [Concomitant]
  3. ECOTRIN [Concomitant]
  4. NEXIUM [Concomitant]
  5. VASOTEC [Concomitant]
  6. LASIX [Concomitant]
  7. NEURONTIN [Concomitant]
  8. LIPITOR [Concomitant]
  9. ADVAIR DISKUS 100/50 [Concomitant]
  10. ADVAIR DISKUS 100/50 [Concomitant]
  11. ALBUTEROL [Concomitant]
  12. RADIATION [Concomitant]

REACTIONS (3)
  - ANOREXIA [None]
  - CHRONIC OBSTRUCTIVE AIRWAYS DISEASE [None]
  - CHRONIC OBSTRUCTIVE AIRWAYS DISEASE EXACERBATED [None]
